FAERS Safety Report 11248414 (Version 1)
Quarter: 2015Q3

REPORT INFORMATION
  Report Type: Spontaneous
  Country: US (occurrence: US)
  Receive Date: 20150708
  Receipt Date: 20150708
  Transmission Date: 20151125
  Serious: No
  Sender: FDA-Public Use
  Company Number: US-ELI_LILLY_AND_COMPANY-US200907002628

PATIENT
  Sex: Male

DRUGS (2)
  1. RITALIN [Concomitant]
     Active Substance: METHYLPHENIDATE HYDROCHLORIDE
     Dosage: UNK, UNKNOWN
     Route: 065
  2. PROZAC [Suspect]
     Active Substance: FLUOXETINE HYDROCHLORIDE
     Indication: BIPOLAR DISORDER
     Dosage: UNK, UNKNOWN
     Route: 065

REACTIONS (3)
  - Feeling abnormal [Recovered/Resolved]
  - Psychotic behaviour [Recovered/Resolved]
  - Heart rate increased [Unknown]
